FAERS Safety Report 4360835-0 (Version None)
Quarter: 2004Q2

REPORT INFORMATION
  Report Type: 
  Country: None (occurrence: None)
  Receive Date: 20040517
  Receipt Date: 20040419
  Transmission Date: 20050107
  Serious: Yes (Life-Threatening, Hospitalization)
  Sender: FDA-Public Use
  Company Number: PHRM2004FR01564

PATIENT
  Age: 78 Year
  Sex: Male
  Weight: 100 kg

DRUGS (4)
  1. LIORESAL [Suspect]
     Dosage: INTRATHECAL
     Route: 037
     Dates: start: 19980101, end: 20040302
  2. CAPTOPRIL [Concomitant]
  3. NOZINAN (LEVOMEPROMAZINE MALEATE) [Concomitant]
  4. CAPTEA (CAPTOPRIL, HYDROCHLOROTHIAZIDE) TABLET [Concomitant]

REACTIONS (12)
  - COMA [None]
  - DEPRESSED LEVEL OF CONSCIOUSNESS [None]
  - DRUG LEVEL ABOVE THERAPEUTIC [None]
  - ESCHERICHIA INFECTION [None]
  - IMPLANT SITE INFECTION [None]
  - INTERSTITIAL LUNG DISEASE [None]
  - KUSSMAUL RESPIRATION [None]
  - MENINGITIS BACTERIAL [None]
  - MIOSIS [None]
  - MUSCULOSKELETAL STIFFNESS [None]
  - PNEUMONIA ASPIRATION [None]
  - SHOCK [None]
